FAERS Safety Report 25823778 (Version 1)
Quarter: 2025Q3

REPORT INFORMATION
  Report Type: Spontaneous
  Country: US (occurrence: None)
  Receive Date: 20250918
  Receipt Date: 20250918
  Transmission Date: 20251021
  Serious: Yes (Hospitalization)
  Sender: FDA-CTU
  Company Number: None

PATIENT
  Age: 83 Year
  Sex: Female
  Weight: 89.1 kg

DRUGS (1)
  1. OLMESARTAN [Suspect]
     Active Substance: OLMESARTAN
     Indication: Hypertension
     Dates: start: 20210520, end: 20250420

REACTIONS (13)
  - Diarrhoea [None]
  - Malabsorption [None]
  - Poor venous access [None]
  - Fungal infection [None]
  - Haematological infection [None]
  - Staphylococcal infection [None]
  - Peripheral swelling [None]
  - Secretion discharge [None]
  - Weight decreased [None]
  - Multi-organ disorder [None]
  - Depression [None]
  - Anxiety [None]
  - Quality of life decreased [None]

NARRATIVE: CASE EVENT DATE: 20250409
